FAERS Safety Report 9240123 (Version 1)
Quarter: 2013Q2

REPORT INFORMATION
  Report Type: Spontaneous
  Country: US (occurrence: None)
  Receive Date: 20130418
  Receipt Date: 20130418
  Transmission Date: 20140414
  Serious: Yes (Disabling)
  Sender: FDA-Public Use
  Company Number: None

PATIENT
  Age: 23 Year
  Sex: Male
  Weight: 68.04 kg

DRUGS (3)
  1. BUSPIRONE HCL [Suspect]
     Indication: ANXIETY
     Dosage: (1) TAB BY MOUTH #047 TWICE DAILY
     Route: 048
  2. LAMOTRIGINE [Suspect]
     Indication: DEPRESSION
     Dosage: (1) TAB TWICE DAILY #047
  3. ABILIFY [Suspect]

REACTIONS (3)
  - Abnormal behaviour [None]
  - Thinking abnormal [None]
  - Product counterfeit [None]
